FAERS Safety Report 9633704 (Version 1)
Quarter: 2013Q4

REPORT INFORMATION
  Report Type: Spontaneous
  Country: US (occurrence: None)
  Receive Date: 20131017
  Receipt Date: 20131017
  Transmission Date: 20140711
  Serious: Yes (Death, Other)
  Sender: FDA-Public Use
  Company Number: USW201310-000119

PATIENT
  Age: 65 Year
  Sex: Male

DRUGS (18)
  1. APOKYN (APOMORPHINE HYDROCHLORIDE) (APOMORPHINE HYDROCHLORIDE) [Suspect]
     Indication: MUSCLE SPASMS
     Dosage: 0.4 ML, FOUR TIMES A DAY (NOT MORE THAN 5 TIMES A DAY)
     Dates: start: 2012, end: 2013
  2. DIAZEPAM (DIAZEPAM) (DIAZEPAM) [Concomitant]
  3. CITALOPRAM (CITALOPRAM) (CITALOPRAM) [Concomitant]
  4. SYNTHROID (LEVOTHYROXINE SODIUM) (LEVOTHYROXINE SODIUM) [Concomitant]
  5. NORTRIPTYLINE (NORTRIPTYLINE) (NORTRIPTYLINE) [Concomitant]
  6. ROPINIROLE (ROPINIROLE) (ROPINIROLE) [Concomitant]
  7. CARBIDOPA/LEVODOPA (CARBIDOPA, LEVODOPA, LEVODOPA) [Concomitant]
  8. METHOCARBAMOL (METHOCARBAMOL) (METHOCARBAMOL) [Concomitant]
  9. SAW PALMETTO [Concomitant]
  10. GLUCOSAMINE (GLUCOSAMINE) (GLUCOSAMINE) [Concomitant]
  11. CHONDROITIN (CHONDROITIN SULFATE) (CHONDROITIN SULFATE) [Concomitant]
  12. EPA/DHA (EICOSAPENTAENOIC ACID, DOCOSAHEXAENOIC ACID) (EICOSAPENTAENOIC ACID, DOCOSAHEXAENOIC ACID) [Concomitant]
  13. B-COMPLEX [Concomitant]
  14. VITAMIN C(VITAMIN C) (VITAMIN C) [Concomitant]
  15. VITAMIN D3 (VITAMIN D3) (VITAMIN D3) [Concomitant]
  16. UBIQUINOL (UBIQUINOL) (UBIQUINOL) [Concomitant]
  17. CALCIUM CITRATE (CALCIUM CITRATE) (CALCIUM CITRATE) [Concomitant]
  18. IRON [Concomitant]

REACTIONS (5)
  - Haematocrit abnormal [None]
  - Wound [None]
  - Lipids abnormal [None]
  - Therapeutic response decreased [None]
  - Off label use [None]
